FAERS Safety Report 14699595 (Version 1)
Quarter: 2018Q1

REPORT INFORMATION
  Report Type: Spontaneous
  Country: FR (occurrence: FR)
  Receive Date: 20180330
  Receipt Date: 20180330
  Transmission Date: 20180509
  Serious: Yes (Hospitalization)
  Sender: FDA-Public Use
  Company Number: FR-MYLANLABS-2018M1018782

PATIENT
  Age: 91 Year
  Sex: Male

DRUGS (7)
  1. PANTOPRAZOLE [Suspect]
     Active Substance: PANTOPRAZOLE
     Indication: HIATUS HERNIA
     Dosage: 40 MG, QD
     Route: 048
     Dates: start: 20160901, end: 20161125
  2. AMLODIPINE [Concomitant]
     Active Substance: AMLODIPINE BESYLATE
     Indication: TRANSIENT ISCHAEMIC ATTACK
     Dosage: 5 MG, QD
     Route: 048
     Dates: start: 20160901
  3. ESOMEPRAZOLE [Suspect]
     Active Substance: ESOMEPRAZOLE
     Indication: HIATUS HERNIA
     Dosage: 40 MG, QD
     Route: 048
     Dates: start: 20171017, end: 20171222
  4. KARDEGIC [Concomitant]
     Active Substance: ASPIRIN DL-LYSINE
     Indication: TRANSIENT ISCHAEMIC ATTACK
     Dosage: 75 MG, QD
     Route: 048
     Dates: start: 20160901
  5. RABEPRAZOLE [Suspect]
     Active Substance: RABEPRAZOLE
     Indication: HIATUS HERNIA
     Dosage: 10 MG, QD
     Route: 048
     Dates: start: 20161125, end: 20170330
  6. BISOCE [Concomitant]
     Active Substance: BISOPROLOL
     Indication: TRANSIENT ISCHAEMIC ATTACK
     Dosage: 5 MG, QD
     Route: 048
     Dates: start: 20160901
  7. PRAVASTATINE                       /00880401/ [Concomitant]
     Indication: TRANSIENT ISCHAEMIC ATTACK
     Dosage: 20 MG, QD
     Route: 048
     Dates: start: 20160901

REACTIONS (1)
  - Drug eruption [Recovered/Resolved]

NARRATIVE: CASE EVENT DATE: 20160901
